FAERS Safety Report 5805366-3 (Version None)
Quarter: 2008Q3

REPORT INFORMATION
  Report Type: 
  Country: None (occurrence: None)
  Receive Date: 20080702
  Receipt Date: 20070731
  Transmission Date: 20090109
  Serious: Yes (Other)
  Sender: FDA-Public Use
  Company Number: HQWYE374102AUG07

PATIENT
  Age: 51 Year
  Sex: Female

DRUGS (3)
  1. ADVIL [Suspect]
     Indication: ARTHRALGIA
     Dosage: 1 TABLET 3X PER 1 DAY, ORAL
     Route: 048
     Dates: start: 20070723
  2. MULTIVITAMINS (ASCORBIC ACID/ERGOCALCIFEROL/FOLIC ACID/NICOTINAMIDE/PA [Concomitant]
  3. PROTONIX [Concomitant]

REACTIONS (1)
  - CHEST DISCOMFORT [None]
